FAERS Safety Report 23240092 (Version 1)
Quarter: 2023Q4

REPORT INFORMATION
  Report Type: Spontaneous
  Country: US (occurrence: None)
  Receive Date: 20231128
  Receipt Date: 20231128
  Transmission Date: 20240109
  Serious: No
  Sender: FDA-Public Use
  Company Number: None

PATIENT
  Age: 10 Month
  Sex: Female
  Weight: 6.85 kg

DRUGS (1)
  1. BEYFORTUS [Suspect]
     Active Substance: NIRSEVIMAB-ALIP
     Indication: Antiviral prophylaxis
     Dosage: OTHER FREQUENCY : ONCE;?
     Route: 030
     Dates: start: 20231105, end: 20231105

REACTIONS (1)
  - Underdose [None]

NARRATIVE: CASE EVENT DATE: 20231105
